FAERS Safety Report 23342111 (Version 1)
Quarter: 2023Q4

REPORT INFORMATION
  Report Type: Spontaneous
  Country: US (occurrence: None)
  Receive Date: 20231226
  Receipt Date: 20231226
  Transmission Date: 20240110
  Serious: Yes (Congenital Anomaly)
  Sender: FDA-Public Use
  Company Number: None

PATIENT
  Age: 26 Year
  Sex: Female
  Weight: 102 kg

DRUGS (7)
  1. SKYRIZI [Suspect]
     Active Substance: RISANKIZUMAB-RZAA
     Indication: Psoriasis
     Dosage: OTHER FREQUENCY : EVERY 12 WEEKS;?
     Route: 058
     Dates: start: 20220228
  2. CITALOPRAM [Concomitant]
     Active Substance: CITALOPRAM HYDROBROMIDE
     Dates: start: 20220215
  3. IBUPROFEN [Concomitant]
     Active Substance: IBUPROFEN
     Dates: start: 20230825, end: 20230915
  4. MELOXICAM [Concomitant]
     Active Substance: MELOXICAM
     Dates: start: 20220215
  5. METFORMIN [Concomitant]
     Active Substance: METFORMIN HYDROCHLORIDE
     Dates: start: 20210821
  6. TRULICITY [Concomitant]
     Active Substance: DULAGLUTIDE
     Dates: start: 20220608
  7. GABAPENTIN [Concomitant]
     Active Substance: GABAPENTIN
     Dates: start: 20210720, end: 20230831

REACTIONS (3)
  - Exposure during pregnancy [None]
  - Maternal drugs affecting foetus [None]
  - Abortion spontaneous [None]

NARRATIVE: CASE EVENT DATE: 20230831
